FAERS Safety Report 17959390 (Version 1)
Quarter: 2020Q2

REPORT INFORMATION
  Report Type: Spontaneous
  Country: FR (occurrence: FR)
  Receive Date: 20200630
  Receipt Date: 20200630
  Transmission Date: 20200714
  Serious: Yes (Other)
  Sender: FDA-Public Use
  Company Number: FR-AUROBINDO-AUR-APL-2020-031139

PATIENT
  Age: 69 Year
  Sex: Female

DRUGS (5)
  1. METFORMINE [Concomitant]
     Active Substance: METFORMIN HYDROCHLORIDE
     Indication: PRODUCT USED FOR UNKNOWN INDICATION
     Dosage: UNK
     Route: 048
  2. AMOXICILLIN. [Suspect]
     Active Substance: AMOXICILLIN
     Indication: INFLUENZA LIKE ILLNESS
     Dosage: UNK
     Route: 048
     Dates: start: 201901, end: 201901
  3. IBUPROFEN. [Suspect]
     Active Substance: IBUPROFEN
     Indication: INFLUENZA LIKE ILLNESS
     Dosage: 800 MILLIGRAM, ONCE A DAY
     Route: 048
     Dates: start: 201901, end: 201901
  4. BIOCALYPTOL [PHOLCODINE] [Suspect]
     Active Substance: PHOLCODINE
     Indication: INFLUENZA LIKE ILLNESS
     Dosage: UNK
     Route: 048
     Dates: start: 201901, end: 201901
  5. JANUVIA [Concomitant]
     Active Substance: SITAGLIPTIN PHOSPHATE
     Indication: PRODUCT USED FOR UNKNOWN INDICATION
     Dosage: UNK
     Route: 048

REACTIONS (1)
  - Toxic skin eruption [Recovered/Resolved]

NARRATIVE: CASE EVENT DATE: 201901
